FAERS Safety Report 5814050-1 (Version None)
Quarter: 2008Q3

REPORT INFORMATION
  Report Type: 
  Country: None (occurrence: None)
  Receive Date: 20080717
  Receipt Date: 20080716
  Transmission Date: 20090109
  Serious: Yes (Other)
  Sender: FDA-Public Use
  Company Number: DE-BOEHRINGER INGELHEIM GMBH, GERMANY-2008-DE-04145DE

PATIENT
  Sex: Female
  Weight: 70 kg

DRUGS (1)
  1. MICARDIS HCT [Suspect]
     Dosage: 80 MGTELMISARTAN /12,5MG HYDROCHLOROTHIAZID
     Route: 048

REACTIONS (4)
  - DRUG ABUSE [None]
  - OVERDOSE [None]
  - SUICIDE ATTEMPT [None]
  - TACHYCARDIA [None]
